FAERS Safety Report 19058282 (Version 1)
Quarter: 2021Q1

REPORT INFORMATION
  Report Type: Spontaneous
  Country: US (occurrence: US)
  Receive Date: 20210325
  Receipt Date: 20210325
  Transmission Date: 20210420
  Serious: No
  Sender: FDA-Public Use
  Company Number: US-LUNDBECK-DKLU3026396

PATIENT
  Age: 8 Decade
  Sex: Male

DRUGS (4)
  1. MIDODRINE [Concomitant]
     Active Substance: MIDODRINE
     Route: 065
  2. NORTHERA [Suspect]
     Active Substance: DROXIDOPA
     Indication: ORTHOSTATIC HYPOTENSION
     Route: 065
  3. MIDODRINE [Concomitant]
     Active Substance: MIDODRINE
     Indication: ORTHOSTATIC HYPOTENSION
     Route: 065
  4. FLUDROCORTISONE [Suspect]
     Active Substance: FLUDROCORTISONE
     Indication: ORTHOSTATIC HYPOTENSION
     Route: 065

REACTIONS (1)
  - Adverse drug reaction [Unknown]
